FAERS Safety Report 8852965 (Version 7)
Quarter: 2013Q3

REPORT INFORMATION
  Report Type: Spontaneous
  Country: US (occurrence: US)
  Receive Date: 20121022
  Receipt Date: 20130904
  Transmission Date: 20140515
  Serious: Yes (Hospitalization, Disabling, Other)
  Sender: FDA-Public Use
  Company Number: US-009507513-1204USA01811

PATIENT
  Sex: Female
  Weight: 50.8 kg

DRUGS (16)
  1. FOSAMAX [Suspect]
     Indication: OSTEOPENIA
     Dosage: 70 MG, QW
     Route: 048
     Dates: start: 20031006
  2. ACTONEL [Suspect]
     Indication: OSTEOPENIA
     Dosage: 35 MG, QW
     Route: 048
     Dates: start: 20020903, end: 20031005
  3. ACTONEL [Suspect]
     Indication: OSTEOPOROSIS
     Dosage: 35 MG, QM
     Route: 048
     Dates: start: 20080228, end: 20100913
  4. ACTONEL [Suspect]
     Dosage: 150 UNK, UNK
     Route: 048
     Dates: start: 200205, end: 200310
  5. ACTONEL [Suspect]
     Dosage: 150 UNK, UNK
     Route: 048
     Dates: start: 20080829, end: 20100901
  6. FOSAMAX PLUS D [Suspect]
     Indication: OSTEOPENIA
     Dosage: UNK
     Route: 048
     Dates: start: 20071023, end: 20080227
  7. FOSAMAX PLUS D [Suspect]
     Indication: OSTEOPOROSIS
     Dosage: UNK, UNKNOWN
     Route: 048
     Dates: start: 200310, end: 20080828
  8. BONIVA [Suspect]
  9. BUPROPION HYDROCHLORIDE [Concomitant]
     Indication: DEPRESSION
     Dosage: UNK
     Dates: start: 20000101
  10. LIPITOR [Concomitant]
     Indication: BLOOD CHOLESTEROL
     Dosage: UNK
     Dates: start: 19980101
  11. CRESTOR [Concomitant]
     Indication: BLOOD CHOLESTEROL
     Dosage: UNK
     Dates: start: 19980101
  12. ZETIA [Concomitant]
     Indication: BLOOD CHOLESTEROL
     Dosage: UNK
     Dates: start: 19980101
  13. BYSTOLIC [Concomitant]
     Indication: BLOOD PRESSURE
     Dosage: UNK
     Dates: start: 19950101
  14. ISOSORB (ISOSORBIDE MONONITRATE) [Concomitant]
     Indication: BLOOD PRESSURE
     Dosage: UNK
     Dates: start: 19950101
  15. AMLODIPINE [Concomitant]
     Indication: BLOOD PRESSURE
     Dosage: UNK
     Dates: start: 19950101
  16. [THERAPY UNSPECIFIED] [Concomitant]
     Indication: BLOOD PRESSURE
     Dosage: UNK
     Dates: start: 19950101

REACTIONS (53)
  - Osteoporosis [Unknown]
  - Deafness [Unknown]
  - Hypertension [Unknown]
  - Hyperlipidaemia [Unknown]
  - Depression [Unknown]
  - Coronary artery disease [Unknown]
  - Coronary artery disease [Not Recovered/Not Resolved]
  - Osteonecrosis of jaw [Recovering/Resolving]
  - Device failure [Unknown]
  - Dental caries [Unknown]
  - Dental plaque [Unknown]
  - Tooth disorder [Unknown]
  - Implant tissue necrosis [Unknown]
  - Upper respiratory tract infection [Unknown]
  - Osteoarthritis [Unknown]
  - Chest pain [Unknown]
  - Infection [Unknown]
  - Tendonitis [Unknown]
  - Anxiety [Unknown]
  - Ligament sprain [Unknown]
  - Muscle strain [Unknown]
  - Cellulitis orbital [Unknown]
  - Blepharitis [Unknown]
  - Nasopharyngitis [Unknown]
  - Conjunctivitis [Unknown]
  - Bronchitis [Unknown]
  - Sinusitis [Unknown]
  - Aortic aneurysm [Unknown]
  - Peripheral arterial occlusive disease [Unknown]
  - Cardiac disorder [Unknown]
  - Electrocardiogram ST segment depression [Unknown]
  - Adjustment disorder [Unknown]
  - Seborrhoea [Unknown]
  - Skin disorder [Unknown]
  - Periodontal disease [Unknown]
  - Gingival abscess [Unknown]
  - Gingival abscess [Unknown]
  - Device related infection [Unknown]
  - Impaired healing [Unknown]
  - Exposed bone in jaw [Unknown]
  - Impaired healing [Unknown]
  - Gingivitis [Unknown]
  - Periodontal disease [Unknown]
  - Fistula discharge [Unknown]
  - Periodontal operation [Not Recovered/Not Resolved]
  - Debridement [Unknown]
  - Tooth extraction [Unknown]
  - Bone loss [Unknown]
  - Medical device removal [Unknown]
  - Dental implantation [Unknown]
  - Dental implantation [Unknown]
  - Toothache [Unknown]
  - Dental prosthesis placement [Unknown]
